FAERS Safety Report 9823260 (Version 4)
Quarter: 2014Q4

REPORT INFORMATION
  Report Type: Spontaneous
  Country: IE (occurrence: IE)
  Receive Date: 20140116
  Receipt Date: 20141014
  Transmission Date: 20150529
  Serious: Yes (Death, Hospitalization, Other)
  Sender: FDA-Public Use
  Company Number: PHFR2014IE000706

PATIENT
  Age: 65 Year
  Sex: Male

DRUGS (6)
  1. VENLAFAXINE [Concomitant]
     Active Substance: VENLAFAXINE HYDROCHLORIDE
     Indication: DEPRESSION
     Dosage: 75 MG, UNK
     Route: 048
  2. GALFER [Concomitant]
     Active Substance: IRON
     Indication: ANAEMIA
     Dosage: UNK
     Route: 048
     Dates: start: 2011
  3. SINEMET [Concomitant]
     Active Substance: CARBIDOPA\LEVODOPA
     Indication: PARKINSON^S DISEASE
     Dosage: 110 MG, UNK
     Route: 048
     Dates: start: 20131201
  4. ESOMEPRAZOLE [Concomitant]
     Active Substance: ESOMEPRAZOLE
     Indication: ABDOMINAL SYMPTOM
     Dosage: 40 MG, UNK
     Route: 048
     Dates: start: 2012
  5. PREDNISONE. [Concomitant]
     Active Substance: PREDNISONE
     Indication: INFECTION
     Dosage: 20 MG, UNK
     Route: 048
     Dates: start: 20140301
  6. CLOZARIL [Suspect]
     Active Substance: CLOZAPINE
     Indication: SCHIZOPHRENIA
     Dosage: UNK
     Route: 048
     Dates: start: 20080724, end: 20140110

REACTIONS (15)
  - General physical health deterioration [Unknown]
  - Pulmonary embolism [Fatal]
  - Cough [Unknown]
  - Pyrexia [Unknown]
  - Blood potassium increased [Unknown]
  - Blood glucose decreased [Unknown]
  - Decreased appetite [Unknown]
  - Dysphagia [Unknown]
  - Lower respiratory tract infection [Unknown]
  - Wrong technique in drug usage process [Unknown]
  - Neutrophil count increased [Recovered/Resolved]
  - Malaise [Unknown]
  - Blood sodium increased [Unknown]
  - Respiratory failure [Fatal]
  - Sepsis [Unknown]

NARRATIVE: CASE EVENT DATE: 2013
